FAERS Safety Report 21968004 (Version 1)
Quarter: 2023Q1

REPORT INFORMATION
  Report Type: Spontaneous
  Country: US (occurrence: US)
  Receive Date: 20230208
  Receipt Date: 20230208
  Transmission Date: 20230418
  Serious: No
  Sender: FDA-Public Use
  Company Number: US-TRAVERE-2022TVT00494

PATIENT
  Age: 4 Year
  Sex: Female

DRUGS (9)
  1. CHOLIC ACID [Suspect]
     Active Substance: CHOLIC ACID
     Indication: Metabolic disorder
     Dosage: DOSE OF 150MG (50 MG 2 CAP IN THE MORNING AND 1 CAP IN THE EVENING)
     Route: 048
     Dates: start: 20220227
  2. ALBUTEROL SULFATE [Concomitant]
     Active Substance: ALBUTEROL SULFATE
  3. BUDESONIDE [Concomitant]
     Active Substance: BUDESONIDE
  4. FLONASE ALLERGY RELIEF [Concomitant]
     Active Substance: FLUTICASONE PROPIONATE
  5. KEPPRA [Concomitant]
     Active Substance: LEVETIRACETAM
  6. LEVOCARNITINE [Concomitant]
     Active Substance: LEVOCARNITINE
  7. PROBIOTIC BLEND [Concomitant]
  8. ZINC [Concomitant]
     Active Substance: ZINC
  9. Flinstones  Gummies Omega-3  DHA [Concomitant]

REACTIONS (2)
  - Seizure [Recovered/Resolved]
  - Onycholysis [Unknown]

NARRATIVE: CASE EVENT DATE: 20220810
